FAERS Safety Report 12540439 (Version 2)
Quarter: 2016Q3

REPORT INFORMATION
  Report Type: Spontaneous
  Country: US (occurrence: US)
  Receive Date: 20160708
  Receipt Date: 20160804
  Transmission Date: 20161109
  Serious: No
  Sender: FDA-Public Use
  Company Number: US-PFIZER INC-2016329182

PATIENT
  Age: 62 Year
  Sex: Female
  Weight: 63.5 kg

DRUGS (22)
  1. LYRICA [Suspect]
     Active Substance: PREGABALIN
     Indication: PAIN
  2. LEVOTHYROXINE. [Concomitant]
     Active Substance: LEVOTHYROXINE
     Indication: THYROID DISORDER
     Dosage: 55 UG, 1X/DAY
  3. MELATONIN [Concomitant]
     Active Substance: MELATONIN
     Dosage: 10 MG, UNK
  4. URSODIOL. [Concomitant]
     Active Substance: URSODIOL
     Indication: LIVER DISORDER
     Dosage: 300 MG, 3X/DAY
  5. LIDOCAINE. [Concomitant]
     Active Substance: LIDOCAINE
     Indication: PAIN
     Dosage: UNK (3, PER 12 HRS. (12 HRS. OFF))
  6. LYRICA [Suspect]
     Active Substance: PREGABALIN
     Indication: NERVE INJURY
     Dosage: 225 MG, 1X/DAY (TAKE 3 (THREE) CAPSULE BY MOUTH AT BEDTIME AS DIRECTED) (75MG, THREE AT BED TIME)T
     Route: 048
     Dates: start: 2014
  7. XIFAXAN [Concomitant]
     Active Substance: RIFAXIMIN
     Indication: AMMONIA ABNORMAL
     Dosage: 500 MG, 2X/DAY
  8. LACTULOSE. [Concomitant]
     Active Substance: LACTULOSE
     Dosage: UNK, 2X/DAY (10 GM/15 ML SOLUTION 3 30 ML )
  9. KLOR-CON [Concomitant]
     Active Substance: POTASSIUM CHLORIDE
     Indication: MUSCLE SPASMS
     Dosage: UNK (3 DAY )
  10. DILAUDID [Concomitant]
     Active Substance: HYDROMORPHONE HYDROCHLORIDE
     Dosage: 4 MG, 3X/DAY
  11. KEFLEX [Concomitant]
     Active Substance: CEPHALEXIN
     Dosage: 500 MG, UNK
  12. VIT B 12 [Concomitant]
     Dosage: INJECTION MTHLY
  13. LEVOTHYROXINE. [Concomitant]
     Active Substance: LEVOTHYROXINE
     Indication: THYROID DISORDER
  14. TORSEMIDE. [Concomitant]
     Active Substance: TORSEMIDE
     Indication: DIURETIC THERAPY
     Dosage: UNK (20-20 MG, (DIURETIC) 2 EVERY 2 DAYS)
  15. OMEGA 3 [Concomitant]
     Active Substance: OMEGA-3 FATTY ACIDS
     Dosage: 600 MG, DAILY [300 MG/OMEGA 3 -2 DAILY]
  16. STOOL SOFTENER [Concomitant]
     Active Substance: DOCUSATE CALCIUM
     Dosage: 4 DF, 1X/DAY
  17. MAGNESIUM [Concomitant]
     Active Substance: MAGNESIUM
     Indication: HOT FLUSH
     Dosage: UNK
  18. LYRICA [Suspect]
     Active Substance: PREGABALIN
     Indication: NEURALGIA
  19. PANTOPRAZOLE [Concomitant]
     Active Substance: PANTOPRAZOLE SODIUM
     Dosage: 1 DF, DAILY (MG 1 DAILY)
  20. CLONAZEPAM. [Concomitant]
     Active Substance: CLONAZEPAM
     Indication: TONIC CLONIC MOVEMENTS
     Dosage: 3 MG, 1X/DAY (1 MG - 3 BEDTIME )
  21. FENTANYL. [Concomitant]
     Active Substance: FENTANYL
     Dosage: 50 UG, ALTERNATE DAY [50 MCG/HR PATCH CHANGE EVERY OTHER DAY)
  22. HYDROMORPHONE [Concomitant]
     Active Substance: HYDROMORPHONE
     Dosage: 4 MG, AS NEEDED (4MG-1-4 TIMES A DAY AS NEEDED)

REACTIONS (2)
  - Bladder prolapse [Recovered/Resolved]
  - Drug hypersensitivity [Unknown]
